FAERS Safety Report 7120593-3 (Version None)
Quarter: 2010Q4

REPORT INFORMATION
  Report Type: 
  Country: None (occurrence: None)
  Receive Date: 20101122
  Receipt Date: 20101122
  Transmission Date: 20110411
  Serious: Yes (Hospitalization)
  Sender: FDA-Public Use
  Company Number: None

PATIENT
  Age: 4 Year
  Sex: Male
  Weight: 17.2367 kg

DRUGS (4)
  1. LANSOPRAZOLE [Suspect]
     Indication: DYSPHAGIA
     Dosage: 1/2 TAB VIA G TUBE TWICE DAILY
     Route: 049
     Dates: start: 20101023
  2. LANSOPRAZOLE [Suspect]
     Indication: GASTROOESOPHAGEAL REFLUX DISEASE
     Dosage: 1/2 TAB VIA G TUBE TWICE DAILY
     Route: 049
     Dates: start: 20101023
  3. LANSOPRAZOLE [Suspect]
     Indication: DYSPHAGIA
     Dosage: 1/2 TAB VIA G TUBE TWICE DAILY
     Route: 049
     Dates: start: 20101024
  4. LANSOPRAZOLE [Suspect]
     Indication: GASTROOESOPHAGEAL REFLUX DISEASE
     Dosage: 1/2 TAB VIA G TUBE TWICE DAILY
     Route: 049
     Dates: start: 20101024

REACTIONS (1)
  - DEVICE OCCLUSION [None]
